FAERS Safety Report 14527860 (Version 1)
Quarter: 2018Q1

REPORT INFORMATION
  Report Type: Spontaneous
  Country: CZ (occurrence: CZ)
  Receive Date: 20180213
  Receipt Date: 20180213
  Transmission Date: 20180509
  Serious: Yes (Congenital Anomaly, Other)
  Sender: FDA-Public Use
  Company Number: CZ-BAUSCH-BL-2018-003820

PATIENT
  Sex: Female
  Weight: 2.18 kg

DRUGS (1)
  1. ACICLOVIR [Suspect]
     Active Substance: ACYCLOVIR
     Indication: PRODUCT USED FOR UNKNOWN INDICATION
     Route: 015

REACTIONS (4)
  - Congenital syphilis [Unknown]
  - Skin lesion [Unknown]
  - Rhinitis [Unknown]
  - Foetal exposure during pregnancy [Unknown]
